FAERS Safety Report 8868602 (Version 1)
Quarter: 2012Q4

REPORT INFORMATION
  Report Type: 
  Country: US (occurrence: US)
  Receive Date: 20121026
  Receipt Date: 20121026
  Transmission Date: 20130627
  Serious: No
  Sender: FDA-Public Use
  Company Number: US-AMGEN-USASP2012046333

PATIENT
  Age: 57 Year
  Sex: Female
  Weight: 47.17 kg

DRUGS (12)
  1. ENBREL [Suspect]
     Indication: PRODUCT USED FOR UNKNOWN INDICATION
     Dosage: 50 mg/ml, qwk
     Route: 058
  2. TOPAMAX [Concomitant]
     Dosage: 100 mg, UNK
  3. PREDNISONE [Concomitant]
     Dosage: 5 mg, UNK
  4. ZYRTEC [Concomitant]
     Dosage: 5 mg, UNK
  5. SYNTHROID [Concomitant]
     Dosage: 50 mug, UNK
  6. SUMATRIPTAN [Concomitant]
     Dosage: 50 mg, UNK
  7. CITALOPRAM [Concomitant]
     Dosage: 20 mg, UNK
  8. VITAMIN-B COMPLEX [Concomitant]
     Dosage: 1000 mug, UNK
  9. CALCIUM [Concomitant]
     Dosage: 600 mg, UNK
  10. VITAMIN D /00107901/ [Concomitant]
     Dosage: 400 unit, UNK
  11. DEXILANT [Concomitant]
     Dosage: 60 mg, UNK
  12. MULTIVITAMIN                       /00097801/ [Concomitant]
     Dosage: UNK

REACTIONS (1)
  - Migraine [Unknown]
